FAERS Safety Report 8404960 (Version 2)
Quarter: 2014Q1

REPORT INFORMATION
  Report Type: Report from Study
  Country: NL (occurrence: NL)
  Receive Date: 20120214
  Receipt Date: 20140108
  Transmission Date: 20141002
  Serious: Yes (Hospitalization)
  Sender: FDA-Public Use
  Company Number: PHHO2012NL002300

PATIENT
  Sex: 0

DRUGS (12)
  1. MYFORTIC [Suspect]
     Indication: RENAL TRANSPLANT
     Dosage: 360 MG, UNK
     Dates: start: 20110729, end: 20111129
  2. MYFORTIC [Suspect]
     Dosage: NO TREATMENT RECEIVED
     Dates: start: 20111130, end: 20111206
  3. MYFORTIC [Suspect]
     Dosage: 360 MG, BID
     Dates: start: 20120113
  4. CERTICAN [Suspect]
     Indication: RENAL TRANSPLANT
     Dosage: 3 MG, BID
     Dates: start: 20110930
  5. PREDNISONE [Concomitant]
     Indication: RENAL TRANSPLANT
     Dosage: 10 MG, UNK
     Dates: start: 20110729
  6. COTRIM [Concomitant]
     Indication: PROPHYLAXIS
     Dosage: 480 MG, UNK
     Dates: start: 20110729
  7. GLIMEPIRIDE [Concomitant]
     Dosage: 2 MG, UNK
     Dates: start: 20110729
  8. NIFEDIPINE [Concomitant]
     Dosage: 30 MG, UNK
     Dates: start: 1988
  9. SIMVASTATIN [Concomitant]
     Dosage: 20 MG, UNK
     Dates: start: 20110729
  10. OMEPRAZOLE [Concomitant]
     Indication: PROPHYLAXIS
     Dosage: 20 MG, UNK
     Dates: start: 20110729
  11. METOPROLOL [Concomitant]
     Dosage: 50 MG, UNK
     Dates: start: 20110729
  12. NEXIUM [Concomitant]
     Indication: PROPHYLAXIS
     Dosage: 20 MG, UNK
     Dates: start: 20110729

REACTIONS (2)
  - Gastroenteritis [Recovered/Resolved with Sequelae]
  - Diabetes mellitus [Recovered/Resolved with Sequelae]
